FAERS Safety Report 22240321 (Version 2)
Quarter: 2023Q2

REPORT INFORMATION
  Report Type: Spontaneous
  Country: US (occurrence: US)
  Receive Date: 20230421
  Receipt Date: 20230424
  Transmission Date: 20230721
  Serious: No
  Sender: FDA-Public Use
  Company Number: US-BIOGEN-2021BI01034401

PATIENT
  Age: 9 Year
  Sex: Male

DRUGS (3)
  1. TYSABRI [Suspect]
     Active Substance: NATALIZUMAB
     Indication: Multiple sclerosis
     Dosage: 300 MG/15 ML
     Route: 050
  2. TYSABRI [Suspect]
     Active Substance: NATALIZUMAB
     Route: 050
     Dates: start: 20210802
  3. MYCOPHENOLIC ACID [Concomitant]
     Active Substance: MYCOPHENOLIC ACID
     Route: 050

REACTIONS (4)
  - Off label use [Not Recovered/Not Resolved]
  - Inappropriate schedule of product administration [Unknown]
  - Sleep disorder [Unknown]
  - Headache [Unknown]

NARRATIVE: CASE EVENT DATE: 20210802
